FAERS Safety Report 9062221 (Version 1)
Quarter: 2013Q1

REPORT INFORMATION
  Report Type: Spontaneous
  Country: US (occurrence: US)
  Receive Date: 20130213
  Receipt Date: 20130213
  Transmission Date: 20140127
  Serious: No
  Sender: FDA-Public Use
  Company Number: US-BIOGENIDEC-2013BI012069

PATIENT
  Age: 41 None
  Sex: Female

DRUGS (1)
  1. AVONEX [Suspect]
     Indication: MULTIPLE SCLEROSIS
     Route: 030
     Dates: start: 20020322

REACTIONS (7)
  - Dehydration [Recovered/Resolved]
  - Tremor [Recovered/Resolved]
  - Hypophagia [Recovered/Resolved]
  - Gastroenteritis viral [Not Recovered/Not Resolved]
  - Poor venous access [Recovered/Resolved]
  - Gastrooesophageal reflux disease [Recovered/Resolved]
  - Vomiting [Recovered/Resolved]
